FAERS Safety Report 9386835 (Version 1)
Quarter: 2013Q3

REPORT INFORMATION
  Report Type: Spontaneous
  Country: DE (occurrence: DE)
  Receive Date: 20130708
  Receipt Date: 20130708
  Transmission Date: 20140515
  Serious: Yes (Death, Other)
  Sender: FDA-Public Use
  Company Number: DE-ROCHE-1245009

PATIENT
  Sex: Female

DRUGS (3)
  1. AVASTIN [Suspect]
     Indication: OVARIAN CANCER
     Route: 065
  2. GEMCITABINE [Concomitant]
     Indication: OVARIAN CANCER
  3. CARBOPLATIN [Concomitant]
     Indication: OVARIAN CANCER

REACTIONS (2)
  - Cellulitis [Fatal]
  - Enterocutaneous fistula [Unknown]
